FAERS Safety Report 5755920-2 (Version None)
Quarter: 2008Q2

REPORT INFORMATION
  Report Type: 
  Country: None (occurrence: None)
  Receive Date: 20080602
  Receipt Date: 20080520
  Transmission Date: 20081010
  Serious: Yes (Other)
  Sender: FDA-Public Use
  Company Number: US-ELI_LILLY_AND_COMPANY-US200805004698

PATIENT
  Sex: Male

DRUGS (2)
  1. ATOMOXETINE HCL [Suspect]
     Dosage: 100 MG, UNK
  2. ATOMOXETINE HCL [Suspect]
     Dosage: 120 MG, UNK

REACTIONS (2)
  - LIVER FUNCTION TEST ABNORMAL [None]
  - OVERDOSE [None]
